FAERS Safety Report 23875232 (Version 1)
Quarter: 2024Q2

REPORT INFORMATION
  Report Type: Spontaneous
  Country: US (occurrence: US)
  Receive Date: 20240520
  Receipt Date: 20240520
  Transmission Date: 20240716
  Serious: No
  Sender: FDA-Public Use
  Company Number: US-FOUNDATIONCONSUMERHC-2024-US-018712

PATIENT
  Age: 20 Year
  Sex: Female
  Weight: 84.82 kg

DRUGS (1)
  1. PLAN B ONE-STEP [Suspect]
     Active Substance: LEVONORGESTREL
     Indication: Post coital contraception
     Dosage: 1.5 MG X UNSPECIFIED NUMBER OF DOSES
     Route: 048
     Dates: end: 20240327

REACTIONS (6)
  - Intentional product misuse [Recovered/Resolved]
  - Dysmenorrhoea [Recovered/Resolved]
  - Menstruation irregular [Recovered/Resolved]
  - Heavy menstrual bleeding [Recovered/Resolved]
  - Incorrect dosage administered [Recovered/Resolved]
  - Migraine [Recovering/Resolving]

NARRATIVE: CASE EVENT DATE: 20240326
